FAERS Safety Report 19866414 (Version 1)
Quarter: 2021Q3

REPORT INFORMATION
  Report Type: Spontaneous
  Country: CN (occurrence: CN)
  Receive Date: 20210921
  Receipt Date: 20210921
  Transmission Date: 20211014
  Serious: Yes (Other)
  Sender: FDA-Public Use
  Company Number: CN-PFIZER INC-202101189824

PATIENT
  Age: 16 Year
  Sex: Female

DRUGS (2)
  1. METHYLPREDNISOLONE. [Suspect]
     Active Substance: METHYLPREDNISOLONE
     Indication: AUTOIMMUNE PANCYTOPENIA
     Dosage: 1.6 MG/KG, 1X/DAY
     Route: 048
  2. METHYLPREDNISOLONE SODIUM SUCCINATE. [Suspect]
     Active Substance: METHYLPREDNISOLONE SODIUM SUCCINATE
     Indication: AUTOIMMUNE PANCYTOPENIA
     Dosage: 1.6 MG/KG, DAILY
     Route: 042

REACTIONS (3)
  - Drug ineffective [Recovered/Resolved]
  - Asthenia [Unknown]
  - Steroid diabetes [Unknown]
